FAERS Safety Report 17365284 (Version 3)
Quarter: 2020Q1

REPORT INFORMATION
  Report Type: Report from Study
  Country: US (occurrence: US)
  Receive Date: 20200204
  Receipt Date: 20200206
  Transmission Date: 20200409
  Serious: Yes (Death)
  Sender: FDA-Public Use
  Company Number: US-ROCHE-2542050

PATIENT
  Sex: Male

DRUGS (4)
  1. RITUXAN [Suspect]
     Active Substance: RITUXIMAB
     Indication: THROMBOCYTOPENIA
  2. RITUXAN [Suspect]
     Active Substance: RITUXIMAB
     Indication: AUTOIMMUNE HAEMOLYTIC ANAEMIA
     Dosage: VIAL-INFUSE 800 MG
     Route: 042
  3. RITUXAN [Suspect]
     Active Substance: RITUXIMAB
     Indication: HAEMOGLOBINURIA
  4. RITUXAN [Suspect]
     Active Substance: RITUXIMAB
     Indication: HAEMOLYSIS

REACTIONS (3)
  - Off label use [Unknown]
  - Death [Fatal]
  - Intentional product use issue [Unknown]
